FAERS Safety Report 12582840 (Version 1)
Quarter: 2016Q3

REPORT INFORMATION
  Report Type: Spontaneous
  Country: BR (occurrence: BR)
  Receive Date: 20160722
  Receipt Date: 20160722
  Transmission Date: 20161109
  Serious: Yes (Other)
  Sender: FDA-Public Use
  Company Number: BR-009507513-1607BRA007906

PATIENT
  Sex: Female

DRUGS (3)
  1. MERCILON  CONTI [Suspect]
     Active Substance: DESOGESTREL\ETHINYL ESTRADIOL
     Indication: LEIOMYOMA
     Dosage: UNK
     Route: 048
  2. ZOLADEX [Concomitant]
     Active Substance: GOSERELIN ACETATE
     Indication: LEIOMYOMA
  3. MERCILON  CONTI [Suspect]
     Active Substance: DESOGESTREL\ETHINYL ESTRADIOL
     Indication: MENSTRUAL CYCLE MANAGEMENT
     Dosage: UNK
     Route: 048

REACTIONS (5)
  - Hypomenorrhoea [Unknown]
  - Myomectomy [Unknown]
  - Infertility female [Unknown]
  - Amenorrhoea [Recovered/Resolved]
  - Product use issue [Unknown]
